FAERS Safety Report 7529707-4 (Version None)
Quarter: 2011Q2

REPORT INFORMATION
  Report Type: 
  Country: None (occurrence: None)
  Receive Date: 20110607
  Receipt Date: 20110530
  Transmission Date: 20111010
  Serious: Yes (Other)
  Sender: FDA-Public Use
  Company Number: B0718065A

PATIENT
  Sex: Male

DRUGS (4)
  1. BISOPROLOL FUMARATE [Concomitant]
  2. AMLODIPINE [Concomitant]
     Indication: HYPERTENSION
     Dosage: 10MG PER DAY
  3. ENALAPRIL MALEATE [Concomitant]
     Indication: HYPERTENSION
     Dosage: 20MG PER DAY
  4. AVODART [Suspect]
     Route: 048
     Dates: start: 20101101, end: 20110113

REACTIONS (5)
  - PARAESTHESIA ORAL [None]
  - SWELLING FACE [None]
  - LIP SWELLING [None]
  - ANGIOEDEMA [None]
  - EYE SWELLING [None]
